FAERS Safety Report 4615111-5 (Version None)
Quarter: 2005Q1

REPORT INFORMATION
  Report Type: 
  Country: None (occurrence: None)
  Receive Date: 20050322
  Receipt Date: 20050318
  Transmission Date: 20050727
  Serious: Yes (Death)
  Sender: FDA-Public Use
  Company Number: PHBS2005SE03935

PATIENT
  Age: 85 Year
  Sex: Female

DRUGS (1)
  1. TEGRETOL [Suspect]

REACTIONS (3)
  - ANAEMIA [None]
  - SHOCK [None]
  - THROMBOCYTOPENIA [None]
